FAERS Safety Report 5552825-7 (Version None)
Quarter: 2007Q4

REPORT INFORMATION
  Report Type: 
  Country: None (occurrence: None)
  Receive Date: 20071212
  Receipt Date: 20070626
  Transmission Date: 20080405
  Serious: No
  Sender: FDA-Public Use
  Company Number: US-AMGEN-KDL225400

PATIENT
  Sex: Male
  Weight: 91.7 kg

DRUGS (10)
  1. ENBREL [Suspect]
     Indication: RHEUMATOID ARTHRITIS
     Route: 058
     Dates: start: 20070207
  2. ENBREL [Suspect]
     Indication: PSORIASIS
  3. PREDNISONE [Concomitant]
     Dates: start: 20000615
  4. MOTRIN [Concomitant]
     Dates: start: 20040405
  5. FLEXERIL [Concomitant]
     Dates: start: 20040920
  6. PRILOSEC [Concomitant]
     Dates: start: 20040620
  7. XANAX [Concomitant]
     Dates: start: 20031009
  8. OSCAL D [Concomitant]
     Dates: start: 20010626
  9. FOSAMAX [Concomitant]
     Dates: start: 20010626
  10. TRAZODONE HCL [Concomitant]

REACTIONS (5)
  - BACK PAIN [None]
  - DRUG INEFFECTIVE [None]
  - MUSCULOSKELETAL STIFFNESS [None]
  - MYALGIA [None]
  - PAIN IN EXTREMITY [None]
